FAERS Safety Report 14365832 (Version 1)
Quarter: 2018Q1

REPORT INFORMATION
  Report Type: Spontaneous
  Country: FR (occurrence: FR)
  Receive Date: 20180109
  Receipt Date: 20180109
  Transmission Date: 20180509
  Serious: Yes (Other)
  Sender: FDA-Public Use
  Company Number: FR-MERCK KGAA-2039663

PATIENT
  Age: 33 Year
  Sex: Female

DRUGS (1)
  1. NOVOTHYROX [Suspect]
     Active Substance: LEVOTHYROXINE SODIUM
     Indication: THYROID DISORDER
     Route: 048
     Dates: start: 2017

REACTIONS (3)
  - Angina pectoris [Not Recovered/Not Resolved]
  - Fatigue [Not Recovered/Not Resolved]
  - Diffuse alopecia [Not Recovered/Not Resolved]

NARRATIVE: CASE EVENT DATE: 2017
